FAERS Safety Report 4650005-0 (Version None)
Quarter: 2005Q2

REPORT INFORMATION
  Report Type: 
  Country: None (occurrence: None)
  Receive Date: 20050428
  Receipt Date: 20050415
  Transmission Date: 20051028
  Serious: Yes (Death)
  Sender: FDA-Public Use
  Company Number: 2005056050

PATIENT
  Age: 78 Year
  Sex: Female
  Weight: 45 kg

DRUGS (5)
  1. GENOTROPIN [Suspect]
     Indication: OFF LABEL USE
     Dosage: SEE IMAGE
     Route: 030
     Dates: start: 20050201, end: 20050301
  2. GENOTROPIN [Suspect]
     Indication: OFF LABEL USE
     Dosage: SEE IMAGE
     Route: 030
     Dates: start: 20050301, end: 20050315
  3. GLYBURIDE [Concomitant]
  4. TOLBUTAMINE (TOLBUTAMIDE) [Concomitant]
  5. PIOGLITAZONE HCL [Concomitant]

REACTIONS (7)
  - CATATONIA [None]
  - DEMENTIA [None]
  - DIABETES MELLITUS INADEQUATE CONTROL [None]
  - DIABETIC COMPLICATION [None]
  - DIALYSIS [None]
  - ESCHAR [None]
  - RENAL FAILURE CHRONIC [None]
